FAERS Safety Report 9631591 (Version 1)
Quarter: 2013Q4

REPORT INFORMATION
  Report Type: Spontaneous
  Country: US (occurrence: US)
  Receive Date: 20131018
  Receipt Date: 20131018
  Transmission Date: 20140711
  Serious: No
  Sender: FDA-Public Use
  Company Number: US-PFIZER INC-2013295316

PATIENT
  Sex: Male

DRUGS (1)
  1. ALAVERT [Suspect]
     Indication: HYPERSENSITIVITY
     Dosage: UNK, ONCE A DAY
     Route: 048
     Dates: start: 201310

REACTIONS (2)
  - Drug ineffective [Unknown]
  - Nasal congestion [Not Recovered/Not Resolved]
